FAERS Safety Report 16482339 (Version 1)
Quarter: 2019Q2

REPORT INFORMATION
  Report Type: Spontaneous
  Country: DK (occurrence: DK)
  Receive Date: 20190627
  Receipt Date: 20190627
  Transmission Date: 20190711
  Serious: Yes (Hospitalization)
  Sender: FDA-Public Use
  Company Number: DK-ACCORD-134976

PATIENT
  Age: 90 Year
  Sex: Female
  Weight: 66 kg

DRUGS (13)
  1. CENTYL WITH POTASSIUM CHLORIDE [Suspect]
     Active Substance: BENDROFLUMETHIAZIDE\POTASSIUM CHLORIDE
     Indication: HYPERTENSION
     Dosage: STRENGTH: 2.5 + 573 MG
     Route: 048
     Dates: start: 20190108, end: 20190523
  2. AMLODIPINE [Concomitant]
     Active Substance: AMLODIPINE BESYLATE
     Indication: HYPERTENSION
     Dosage: STRENGTH: 5 MG.
     Route: 048
     Dates: start: 20190507, end: 20190523
  3. PARACETAMOL ORIFARM [Concomitant]
     Indication: PAIN
     Dosage: STRENGTH: 500 MG.
     Route: 048
     Dates: start: 20170829
  4. TRIMOPAN [Concomitant]
     Indication: PROPHYLAXIS URINARY TRACT INFECTION
     Dosage: STRENGTH: 100 MG
     Route: 048
     Dates: start: 20171220
  5. ANCOZAN [Concomitant]
     Active Substance: LOSARTAN POTASSIUM
     Indication: HYPERTENSION
     Dosage: STRENGTH: 100 MG.
     Route: 048
     Dates: start: 20190128
  6. UNIQUE WITH VITAMIN D [Concomitant]
     Indication: MINERAL SUPPLEMENTATION
     Dosage: STRENGTH: UNKNOWN
     Route: 048
     Dates: start: 20170829
  7. SERTRALIN ACCORD [Suspect]
     Active Substance: SERTRALINE HYDROCHLORIDE
     Indication: DEPRESSION
     Dosage: STRENGTH: 50 MG.
     Route: 048
     Dates: start: 20190513, end: 20190523
  8. HYPROSAN [Concomitant]
     Indication: LACRIMATION DECREASED
     Dosage: DOSE: 1 DROP SEVERAL TIMES. STRENGTH: 3.2 MG / ML
     Route: 050
     Dates: start: 20170503
  9. COLECALCIFEROL [Concomitant]
     Active Substance: CHOLECALCIFEROL
     Indication: VITAMIN SUPPLEMENTATION
     Dosage: STRENGTH: 35 MICROGRAMS
     Route: 048
     Dates: start: 20160927
  10. PROLIA [Concomitant]
     Active Substance: DENOSUMAB
     Indication: OSTEOPOROSIS
     Dosage: STRENGTH: 60 MG / ML.
     Dates: start: 20180102
  11. MIRTAZAPIN ACTAVIS [Concomitant]
     Active Substance: MIRTAZAPINE
     Indication: DEPRESSION
     Dosage: STRENGTH: 15 MG
     Route: 048
     Dates: start: 20170111
  12. KALEORID [Concomitant]
     Active Substance: POTASSIUM CHLORIDE
     Indication: MINERAL SUPPLEMENTATION
     Dosage: STYRKE: 750 MG.
     Route: 048
     Dates: start: 20170915
  13. THIAMAZOL 2CARE4 [Concomitant]
     Indication: HYPERTHYROIDISM
     Dosage: STRENGTH: 5 MG.
     Route: 048
     Dates: start: 20190304

REACTIONS (3)
  - Hyponatraemia [Recovering/Resolving]
  - Fatigue [Unknown]
  - General physical health deterioration [Unknown]

NARRATIVE: CASE EVENT DATE: 20190523
